FAERS Safety Report 9263232 (Version 1)
Quarter: 2013Q2

REPORT INFORMATION
  Report Type: Spontaneous
  Country: US (occurrence: None)
  Receive Date: 20130429
  Receipt Date: 20130429
  Transmission Date: 20140414
  Serious: Yes (Death)
  Sender: FDA-Public Use
  Company Number: None

PATIENT
  Age: 60 Year
  Sex: Male

DRUGS (2)
  1. INCIVEK [Suspect]
     Route: 048
     Dates: start: 20130312
  2. PEGASYS [Suspect]
     Route: 058

REACTIONS (1)
  - Pneumonia [None]
